FAERS Safety Report 5063408-X (Version None)
Quarter: 2006Q3

REPORT INFORMATION
  Report Type: 
  Country: None (occurrence: None)
  Receive Date: 20060727
  Receipt Date: 20060630
  Transmission Date: 20061208
  Serious: Yes (Hospitalization)
  Sender: FDA-Public Use
  Company Number: DE-SANOFI-SYNTHELABO-A04200600671

PATIENT
  Sex: Male
  Weight: 65 kg

DRUGS (3)
  1. PLAVIX [Suspect]
     Indication: CORONARY ARTERY DISEASE
     Route: 048
     Dates: start: 20041028, end: 20060614
  2. INEGY [Concomitant]
     Indication: HYPERLIPIDAEMIA
     Dosage: 1 TABLET/DAY (10/10MG)
     Route: 048
     Dates: start: 20050201
  3. CONCOR COR [Concomitant]
     Indication: CORONARY ARTERY DISEASE
     Route: 048
     Dates: start: 20041014

REACTIONS (3)
  - GASTRIC ULCER HAEMORRHAGE [None]
  - HELICOBACTER GASTRITIS [None]
  - IRON DEFICIENCY ANAEMIA [None]
